FAERS Safety Report 18082398 (Version 2)
Quarter: 2021Q1

REPORT INFORMATION
  Report Type: Spontaneous
  Country: ES (occurrence: ES)
  Receive Date: 20200728
  Receipt Date: 20210325
  Transmission Date: 20210419
  Serious: Yes (Other)
  Sender: FDA-Public Use
  Company Number: NVSC2020ES210037

PATIENT
  Age: 70 Year
  Sex: Male

DRUGS (6)
  1. OPTAVA (CARMELLOSE SODIUM) [Suspect]
     Active Substance: CARBOXYMETHYLCELLULOSE SODIUM
     Indication: EYE LUBRICATION THERAPY
     Dosage: UNK
     Route: 047
  2. HYABAK [Suspect]
     Active Substance: HYALURONATE SODIUM
     Indication: EYE LUBRICATION THERAPY
     Dosage: UNK
     Route: 047
  3. HYDROCORTISONE SODIUM PHOSPHATE [Suspect]
     Active Substance: HYDROCORTISONE SODIUM PHOSPHATE
     Indication: BLEPHARITIS
     Dosage: 2 DRP, QD (NEXT 5 DAYS)
     Route: 047
  4. HYDROCORTISONE SODIUM PHOSPHATE [Suspect]
     Active Substance: HYDROCORTISONE SODIUM PHOSPHATE
     Dosage: 1 DRP, QD (NEXT 4 DAYS)
     Route: 047
  5. HYDROCORTISONE SODIUM PHOSPHATE [Suspect]
     Active Substance: HYDROCORTISONE SODIUM PHOSPHATE
     Dosage: 3 DRP, QD (FIRST 5 DAYS)
     Route: 047
  6. AZITHROMYCIN DIHYDRATE. [Suspect]
     Active Substance: AZITHROMYCIN DIHYDRATE
     Indication: BLEPHARITIS
     Dosage: 2 DRP, QD (EYE DROPS, SOLUTION IN SINGLE?DOSE CONTAINER)
     Route: 047

REACTIONS (5)
  - Off label use [Unknown]
  - Prescribed underdose [Unknown]
  - Blindness [Unknown]
  - Underdose [Unknown]
  - Inappropriate schedule of product administration [Unknown]
